FAERS Safety Report 6786317-4 (Version None)
Quarter: 2010Q2

REPORT INFORMATION
  Report Type: 
  Country: None (occurrence: None)
  Receive Date: 20100623
  Receipt Date: 20100615
  Transmission Date: 20101027
  Serious: Yes (Other)
  Sender: FDA-Public Use
  Company Number: GXKR2010IT06597

PATIENT
  Age: 70 Year
  Sex: Female

DRUGS (1)
  1. KETOROLAC (NGX) [Suspect]
     Route: 030

REACTIONS (6)
  - DEBRIDEMENT [None]
  - EMBOLIA CUTIS MEDICAMENTOSA [None]
  - INFLAMMATION [None]
  - INJECTION SITE PAIN [None]
  - SKIN ULCER [None]
  - SUTURE INSERTION [None]
